FAERS Safety Report 4990422-2 (Version None)
Quarter: 2006Q2

REPORT INFORMATION
  Report Type: 
  Country: None (occurrence: None)
  Receive Date: 20060427
  Receipt Date: 20060420
  Transmission Date: 20061013
  Serious: Yes (Other)
  Sender: FDA-Public Use
  Company Number: EM2006-0198

PATIENT
  Age: 12 Year
  Sex: Male

DRUGS (7)
  1. TOBI [Suspect]
     Indication: PSEUDOMONAS INFECTION
     Dosage: 300 MG BID INHALATION
     Route: 055
     Dates: start: 20051121, end: 20051225
  2. TOBI [Suspect]
     Indication: PSEUDOMONAS INFECTION
     Dosage: 300 MG BID INHALATION
     Route: 055
     Dates: start: 20060324
  3. CIPRO [Suspect]
     Indication: PSEUDOMONAS INFECTION
     Dosage: 750 MG BID
     Dates: start: 20060324
  4. ULTRASE MT12 [Concomitant]
  5. PULMOZYME [Concomitant]
  6. ZITHROMAX [Concomitant]
  7. CEPHALEXIN [Concomitant]

REACTIONS (3)
  - BRADYCARDIA [None]
  - FATIGUE [None]
  - LETHARGY [None]
